FAERS Safety Report 5743515-6 (Version None)
Quarter: 2008Q2

REPORT INFORMATION
  Report Type: 
  Country: None (occurrence: None)
  Receive Date: 20080520
  Receipt Date: 20080513
  Transmission Date: 20081010
  Serious: Yes (Life-Threatening, Hospitalization, Other)
  Sender: FDA-Public Use
  Company Number: AT-ELI_LILLY_AND_COMPANY-AT200804003378

PATIENT
  Age: 39 Year
  Sex: Male

DRUGS (13)
  1. ZYPREXA [Suspect]
     Indication: BIPOLAR I DISORDER
     Dosage: 10 MG, DAILY (1/D)
     Route: 048
     Dates: start: 20071221, end: 20080320
  2. ZYPREXA [Suspect]
     Dosage: 5 MG, DAILY (1/D)
     Route: 048
     Dates: start: 20080321
  3. ZYPREXA [Suspect]
     Route: 048
     Dates: start: 19970101
  4. ZYPREXA [Suspect]
     Route: 048
     Dates: start: 20030101
  5. ZYPREXA [Suspect]
     Route: 048
     Dates: start: 20040101
  6. ZYPREXA [Suspect]
     Route: 048
     Dates: start: 20050101
  7. ZYPREXA [Suspect]
     Route: 048
     Dates: start: 20060101
  8. CONVULEX [Concomitant]
     Indication: BIPOLAR DISORDER
     Dosage: 1500 MG, DAILY (1/D)
     Route: 048
     Dates: start: 20071025
  9. QUILONORM /AUT/ [Concomitant]
     Indication: BIPOLAR DISORDER
     Dosage: 900 MG, DAILY (1/D)
     Route: 048
     Dates: start: 20071130, end: 20071206
  10. QUILONORM /AUT/ [Concomitant]
     Dosage: 1350 MG, DAILY (1/D)
     Route: 048
     Dates: start: 20071207, end: 20071216
  11. QUILONORM /AUT/ [Concomitant]
     Dosage: 1575 MG, DAILY (1/D)
     Route: 048
     Dates: start: 20071217, end: 20071228
  12. QUILONORM /AUT/ [Concomitant]
     Dosage: 1350 MG, DAILY (1/D)
     Route: 048
     Dates: start: 20071229
  13. ZOLPIDEM [Concomitant]
     Dosage: 10 MG, DAILY (1/D)
     Dates: start: 20071212, end: 20080225

REACTIONS (4)
  - BLOOD SODIUM DECREASED [None]
  - DIABETES MELLITUS [None]
  - DIABETIC NEPHROPATHY [None]
  - HOSPITALISATION [None]
